FAERS Safety Report 17632221 (Version 1)
Quarter: 2020Q2

REPORT INFORMATION
  Report Type: Spontaneous
  Country: US (occurrence: US)
  Receive Date: 20200403
  Receipt Date: 20200403
  Transmission Date: 20200713
  Serious: Yes (Life-Threatening, Hospitalization, Disabling)
  Sender: FDA-Public Use
  Company Number: None

PATIENT
  Age: 80 Year
  Sex: Male
  Weight: 83.91 kg

DRUGS (5)
  1. C-PAP MACHINE [Concomitant]
     Active Substance: DEVICE
  2. PLAVIX [Concomitant]
     Active Substance: CLOPIDOGREL BISULFATE
  3. LUCENTIS [Suspect]
     Active Substance: RANIBIZUMAB
     Indication: MACULAR DEGENERATION
     Dates: start: 201909, end: 201912
  4. EZETIMIBE 10MG [Concomitant]
     Active Substance: EZETIMIBE
  5. ROPINIROLE - ORAL [Suspect]
     Active Substance: ROPINIROLE
     Indication: MACULAR DEGENERATION
     Dates: start: 201909, end: 201912

REACTIONS (1)
  - Cerebrovascular accident [None]

NARRATIVE: CASE EVENT DATE: 20191231
